FAERS Safety Report 5422150-3 (Version None)
Quarter: 2007Q3

REPORT INFORMATION
  Report Type: 
  Country: None (occurrence: None)
  Receive Date: 20070820
  Receipt Date: 20070803
  Transmission Date: 20080115
  Serious: Yes (Hospitalization)
  Sender: FDA-Public Use
  Company Number: AZAUK200700269

PATIENT
  Age: 55 Year
  Sex: Male
  Weight: 67.9 kg

DRUGS (12)
  1. VIDAZA [Suspect]
     Indication: MYELODYSPLASTIC SYNDROME
     Dosage: 135 MG (DAILY X 5 DAYS), SUBCUTANEOUS
     Route: 058
     Dates: start: 20070521, end: 20070525
  2. VALPROATE SODIUM [Suspect]
     Indication: MYELODYSPLASTIC SYNDROME
     Dosage: 3000 MG, ORAL
     Route: 048
     Dates: start: 20070423, end: 20070607
  3. THEOPHYLLINE [Suspect]
     Indication: MYELODYSPLASTIC SYNDROME
     Dosage: 175 MG (175 MG, ONCE DAILY), ORAL
     Route: 048
     Dates: start: 20070423, end: 20070524
  4. ATRA [Suspect]
     Indication: MYELODYSPLASTIC SYNDROME
     Dosage: 80 MG (40 MC, TWICE DAILY), ORAL
     Route: 048
     Dates: start: 20070423, end: 20070608
  5. CIPROFLOXACIN [Concomitant]
  6. ACYCLOVIR [Concomitant]
  7. ALLOPURINOL [Concomitant]
  8. PENICILLIN V [Concomitant]
  9. LANSOPRAZOLE [Concomitant]
  10. ATENOLOL [Concomitant]
  11. HYDROXYUREA [Concomitant]
  12. METOCLOPRAMIDE [Concomitant]

REACTIONS (8)
  - ATRIAL FLUTTER [None]
  - CHEST X-RAY ABNORMAL [None]
  - DIARRHOEA [None]
  - DISEASE RECURRENCE [None]
  - HYPERTENSION [None]
  - HYPOTENSION [None]
  - PYREXIA [None]
  - TACHYCARDIA [None]
